FAERS Safety Report 7734805 (Version 7)
Quarter: 2013Q2

REPORT INFORMATION
  Report Type: Report from Study
  Country: JP (occurrence: JP)
  Receive Date: 20101223
  Receipt Date: 20130605
  Transmission Date: 20140414
  Serious: Yes (Hospitalization)
  Sender: FDA-Public Use
  Company Number: PHHO2009JP10973

PATIENT
  Age: 23 Year
  Sex: Female
  Weight: 43 kg

DRUGS (18)
  1. EVEROLIMUS [Suspect]
     Indication: RENAL TRANSPLANT
     Dosage: 1.5 MG, DAILY
     Route: 048
     Dates: start: 20090606, end: 20090904
  2. NEORAL [Suspect]
     Indication: RENAL TRANSPLANT
     Dosage: 120 MG, DAILY
     Route: 048
     Dates: start: 20090603
  3. NEORAL [Suspect]
     Dosage: 100 MG, DAILY
     Route: 048
     Dates: start: 20101025
  4. SIMULECT / CHI 621A / SDZ CHI 621 [Suspect]
     Indication: RENAL TRANSPLANT
     Dosage: 20 MG, ONCE/SINGLE
     Route: 042
     Dates: start: 20090605, end: 20090605
  5. SIMULECT / CHI 621A / SDZ CHI 621 [Suspect]
     Dosage: 20 MG, ONCE/SINGLE
     Route: 042
     Dates: start: 20090606, end: 20090606
  6. PREDNISOLONE [Suspect]
     Indication: RENAL TRANSPLANT
     Dosage: 10 MG, DAILY
     Route: 048
     Dates: start: 20090605
  7. PREDNISOLONE [Suspect]
     Dosage: 5 MG, DAILY
     Route: 048
  8. PREDNISOLONE [Suspect]
     Dosage: 10 MG, DAILY
     Route: 048
     Dates: start: 20101220
  9. LIPITOR [Concomitant]
     Indication: HYPERLIPIDAEMIA
     Dosage: UNK
     Route: 048
     Dates: start: 20110304
  10. BAKTAR [Concomitant]
  11. NORVASC [Concomitant]
     Indication: HYPERTENSION
     Dosage: UNK
     Dates: start: 20090723, end: 20101222
  12. LOCHOL [Concomitant]
     Indication: HYPERCHOLESTEROLAEMIA
     Dosage: 30 MG, UNK
     Route: 048
     Dates: start: 20090617
  13. ISODINE [Concomitant]
     Indication: PROPHYLAXIS
     Dosage: UNK
     Dates: start: 20090606
  14. TAKEPRON [Concomitant]
     Indication: PROPHYLAXIS AGAINST GASTROINTESTINAL ULCER
     Dosage: 15 MG, UNK
     Route: 048
     Dates: start: 20090606
  15. FERROMIA [Concomitant]
     Indication: IRON DEFICIENCY ANAEMIA
     Dosage: 50 MG, UNK
     Route: 048
     Dates: start: 20090813
  16. CINAL [Concomitant]
     Indication: IRON DEFICIENCY ANAEMIA
     Dosage: 2 G, UNK
     Route: 048
     Dates: start: 20090813
  17. RENIVACE [Concomitant]
     Indication: HYPERTENSION
     Dosage: UNK
     Route: 048
     Dates: start: 20110210
  18. DALACIN T [Concomitant]
     Indication: ACNE
     Dosage: UNK
     Route: 048
     Dates: start: 20110414

REACTIONS (5)
  - Renal cyst infection [Recovering/Resolving]
  - Pyrexia [Recovering/Resolving]
  - Back pain [Recovering/Resolving]
  - Proteinuria [Recovered/Resolved]
  - Nephrosclerosis [Recovering/Resolving]
